FAERS Safety Report 21697849 (Version 1)
Quarter: 2022Q4

REPORT INFORMATION
  Report Type: Spontaneous
  Country: US (occurrence: US)
  Receive Date: 20221208
  Receipt Date: 20221208
  Transmission Date: 20230113
  Serious: No
  Sender: FDA-Public Use
  Company Number: US-CIPLA LTD.-2022US03055

PATIENT
  Age: 27 Year
  Sex: Female

DRUGS (2)
  1. TENOFOVIR [Suspect]
     Active Substance: TENOFOVIR
     Indication: Antiretroviral therapy
     Dosage: 300/DAY (UNITS UNSPECIFIED), 1 COURSE
     Route: 048
  2. ENTECAVIR [Suspect]
     Active Substance: ENTECAVIR
     Indication: Antiretroviral therapy
     Dosage: 0.5/DAY (UNITS UNSPECIFIED), 1 COURSE
     Route: 048

REACTIONS (2)
  - Exposure during pregnancy [Unknown]
  - No adverse event [Unknown]
